FAERS Safety Report 22942623 (Version 8)
Quarter: 2024Q1

REPORT INFORMATION
  Report Type: Spontaneous
  Country: JP (occurrence: JP)
  Receive Date: 20230914
  Receipt Date: 20240228
  Transmission Date: 20240409
  Serious: Yes (Other)
  Sender: FDA-Public Use
  Company Number: JP-PFIZER INC-PV202300154210

PATIENT
  Age: 61 Year
  Sex: Female

DRUGS (1)
  1. ATGAM [Suspect]
     Active Substance: EQUINE THYMOCYTE IMMUNE GLOBULIN
     Dosage: UNK
     Route: 041
     Dates: start: 20230829

REACTIONS (4)
  - Bradycardia [Recovering/Resolving]
  - Erythema [Recovered/Resolved]
  - Serum sickness [Recovered/Resolved]
  - Alopecia [Recovered/Resolved]

NARRATIVE: CASE EVENT DATE: 20230830
